FAERS Safety Report 9163501 (Version 1)
Quarter: 2013Q1

REPORT INFORMATION
  Report Type: Spontaneous
  Country: US (occurrence: US)
  Receive Date: 20130314
  Receipt Date: 20130314
  Transmission Date: 20140127
  Serious: Yes (Other)
  Sender: FDA-Public Use
  Company Number: US-PFIZER INC-2013084207

PATIENT
  Age: 38 Year
  Sex: Male
  Weight: 77.1 kg

DRUGS (9)
  1. EFFEXOR [Suspect]
     Dosage: UNK
  2. ATIVAN [Suspect]
     Dosage: UNK
  3. LITHIUM CARBONATE [Suspect]
     Dosage: UNK
  4. WELLBUTRIN [Suspect]
     Dosage: UNK
  5. CONCERTA [Suspect]
     Dosage: UNK
  6. DEPAKOTE [Suspect]
     Dosage: UNK
  7. TRILEPTAL [Suspect]
     Dosage: UNK
  8. LEXAPRO [Suspect]
     Dosage: UNK
  9. AMBIEN [Suspect]
     Dosage: UNK

REACTIONS (6)
  - Atrial fibrillation [Unknown]
  - Myocardial infarction [Unknown]
  - Suicide attempt [Unknown]
  - Imprisonment [Unknown]
  - Panic attack [Unknown]
  - Nasopharyngitis [Unknown]
